FAERS Safety Report 4909724-0 (Version None)
Quarter: 2006Q1

REPORT INFORMATION
  Report Type: 
  Country: None (occurrence: None)
  Receive Date: 20060209
  Receipt Date: 20060127
  Transmission Date: 20060701
  Serious: Yes (Death)
  Sender: FDA-Public Use
  Company Number: 2006014358

PATIENT
  Sex: Male
  Weight: 90.7194 kg

DRUGS (6)
  1. LIPITOR [Suspect]
     Indication: BLOOD CHOLESTEROL INCREASED
     Dosage: 20 MG (20 MG, 1 IN 1 D), ORAL
     Route: 048
     Dates: end: 20050401
  2. NITROGLYCERIN [Suspect]
     Indication: ANGINA PECTORIS
     Dosage: (AS NEEDED)
  3. TOPROL-XL [Concomitant]
  4. GLUCOVANCE [Concomitant]
  5. ANTIGOUT PREPARATIONS (ANTIGOUT PREPARATIONS) [Concomitant]
  6. ANTIHYPERTENSIVES (ANTIHYPERTENSIVES) [Concomitant]

REACTIONS (3)
  - ANGINA PECTORIS [None]
  - ARTERIOSCLEROSIS [None]
  - CARDIAC FAILURE CONGESTIVE [None]
